FAERS Safety Report 9915309 (Version 2)
Quarter: 2016Q2

REPORT INFORMATION
  Report Type: Report from Study
  Country: US (occurrence: US)
  Receive Date: 20140221
  Receipt Date: 20160413
  Transmission Date: 20160815
  Serious: Yes (Other)
  Sender: FDA-Public Use
  Company Number: US-ROCHE-1315195

PATIENT
  Age: 63 Year
  Sex: Female

DRUGS (19)
  1. LUCENTIS [Suspect]
     Active Substance: RANIBIZUMAB
     Indication: MACULAR FIBROSIS
  2. MACUGEN [Concomitant]
     Active Substance: PEGAPTANIB SODIUM
     Route: 065
     Dates: start: 200508, end: 20080417
  3. OMEGA 3 [Concomitant]
     Active Substance: OMEGA-3 FATTY ACIDS
  4. LUCENTIS [Suspect]
     Active Substance: RANIBIZUMAB
     Indication: CYSTOID MACULAR OEDEMA
     Route: 050
     Dates: start: 20110609
  5. OXYGEN. [Concomitant]
     Active Substance: OXYGEN
     Route: 065
  6. CIPROFLOXACIN. [Concomitant]
     Active Substance: CIPROFLOXACIN
     Dosage: FOR 3 DAYS
     Route: 047
  7. AVASTIN [Suspect]
     Active Substance: BEVACIZUMAB
     Route: 065
     Dates: start: 20051213, end: 20080417
  8. SPIRIVA [Concomitant]
     Active Substance: TIOTROPIUM BROMIDE MONOHYDRATE
  9. TURMERIC [Concomitant]
     Active Substance: TURMERIC
  10. COLLAGEN [Concomitant]
     Active Substance: COLLAGEN
  11. AVASTIN [Suspect]
     Active Substance: BEVACIZUMAB
     Indication: PRODUCT USED FOR UNKNOWN INDICATION
     Route: 065
     Dates: start: 20070531, end: 20080226
  12. LUCENTIS [Suspect]
     Active Substance: RANIBIZUMAB
     Indication: NEOVASCULAR AGE-RELATED MACULAR DEGENERATION
  13. DICYCLOMINE [Concomitant]
     Active Substance: DICYCLOMINE HYDROCHLORIDE
  14. AVASTIN [Suspect]
     Active Substance: BEVACIZUMAB
     Route: 065
     Dates: start: 20080226
  15. FOSAMAX [Concomitant]
     Active Substance: ALENDRONATE SODIUM
  16. PREMARIN [Concomitant]
     Active Substance: ESTROGENS, CONJUGATED
  17. SYMBICORT [Concomitant]
     Active Substance: BUDESONIDE\FORMOTEROL FUMARATE DIHYDRATE
  18. TISSUE SALTS [Concomitant]
  19. SULFAMETHOXAZOLE [Concomitant]
     Active Substance: SULFAMETHOXAZOLE

REACTIONS (12)
  - Visual impairment [Unknown]
  - Visual acuity reduced [Unknown]
  - Macular scar [Unknown]
  - Vision blurred [Recovering/Resolving]
  - Cystoid macular oedema [Unknown]
  - Macular oedema [Recovered/Resolved]
  - Vitreous floaters [Unknown]
  - Blepharitis [Unknown]
  - Visual impairment [Unknown]
  - Macular fibrosis [Unknown]
  - Photopsia [Unknown]
  - Metamorphopsia [Unknown]

NARRATIVE: CASE EVENT DATE: 20110804
